FAERS Safety Report 18360256 (Version 1)
Quarter: 2020Q4

REPORT INFORMATION
  Report Type: Spontaneous
  Country: US (occurrence: US)
  Receive Date: 20201008
  Receipt Date: 20201008
  Transmission Date: 20210114
  Serious: No
  Sender: FDA-Public Use
  Company Number: US-INDIVIOR US-INDV-122478-2019

PATIENT
  Sex: Female

DRUGS (4)
  1. SUBOXONE [Suspect]
     Active Substance: BUPRENORPHINE HYDROCHLORIDE\NALOXONE HYDROCHLORIDE
     Dosage: CUT BACK TO 2MG FOR ABOUT 2 WEEKS
     Route: 065
     Dates: start: 201911, end: 201911
  2. SUBOXONE [Suspect]
     Active Substance: BUPRENORPHINE HYDROCHLORIDE\NALOXONE HYDROCHLORIDE
     Indication: PRODUCT USED FOR UNKNOWN INDICATION
     Dosage: UNKNOWN, TAKING LESS THAN 4MG PER DAY
     Route: 065
     Dates: start: 2019, end: 201911
  3. SUBOXONE [Suspect]
     Active Substance: BUPRENORPHINE HYDROCHLORIDE\NALOXONE HYDROCHLORIDE
     Dosage: DOWN TO 1MG FOR ABOUT A WEEK
     Route: 065
     Dates: start: 201911, end: 201911
  4. SUBOXONE [Suspect]
     Active Substance: BUPRENORPHINE HYDROCHLORIDE\NALOXONE HYDROCHLORIDE
     Dosage: UNKNOWN, EXCESS SUBOXONE
     Route: 065
     Dates: start: 201911, end: 201911

REACTIONS (6)
  - Drug withdrawal syndrome [Unknown]
  - Influenza like illness [Unknown]
  - Wrong technique in product usage process [Recovered/Resolved]
  - Asthenia [Unknown]
  - Skin burning sensation [Unknown]
  - Intentional underdose [Recovered/Resolved]

NARRATIVE: CASE EVENT DATE: 2019
